FAERS Safety Report 25976873 (Version 2)
Quarter: 2025Q4

REPORT INFORMATION
  Report Type: Report from Study
  Country: EU (occurrence: EU)
  Receive Date: 20251029
  Receipt Date: 20251114
  Transmission Date: 20260118
  Serious: Yes (Hospitalization)
  Sender: ABBVIE
  Company Number: EU-ABBVIE-6518270

PATIENT
  Age: 71 Year
  Sex: Male

DRUGS (2)
  1. FOSCARBIDOPA\FOSLEVODOPA [Suspect]
     Active Substance: FOSCARBIDOPA\FOSLEVODOPA
     Indication: Parkinson^s disease
     Dosage: 240MG/ML FOSLEVODOPA + 12MG/ML FOSCARBIDOPA?INITIAL DOSES: LOAD 0.6 ML, HIGH 0.34 ML/H, BASE 0.34...
     Route: 058
     Dates: start: 20250829
  2. FOSCARBIDOPA\FOSLEVODOPA [Suspect]
     Active Substance: FOSCARBIDOPA\FOSLEVODOPA
     Dosage: 240MG/ML FOSLEVODOPA + 12MG/ML FOSCARBIDOPA, LOAD 0.6ML, HIGH 0.48ML/H, BASE 0.46ML/H, LOW 0.21ML...
     Route: 058

REACTIONS (2)
  - Gastric perforation [Recovering/Resolving]
  - Dyspnoea [Recovering/Resolving]

NARRATIVE: CASE EVENT DATE: 20251001
